FAERS Safety Report 5479233-1 (Version None)
Quarter: 2007Q4

REPORT INFORMATION
  Report Type: 
  Country: None (occurrence: None)
  Receive Date: 20071008
  Receipt Date: 20071001
  Transmission Date: 20080405
  Serious: Yes (Hospitalization, Other)
  Sender: FDA-Public Use
  Company Number: PHNU2007DE02932

PATIENT
  Age: 62 Year
  Sex: Male
  Weight: 80 kg

DRUGS (12)
  1. GLEEVEC [Suspect]
     Indication: CHRONIC MYELOID LEUKAEMIA
     Dosage: 400 MG/DAY
     Route: 048
     Dates: start: 20070213, end: 20070216
  2. GLEEVEC [Suspect]
     Dosage: 800 MG/DAY
     Route: 048
     Dates: start: 20070225, end: 20070623
  3. GLEEVEC [Suspect]
     Dosage: 400 MG/DAY
     Route: 048
     Dates: start: 20070816
  4. RAMIPRIL [Concomitant]
     Dosage: 1 DF, QD
     Route: 065
  5. PANTOPRAZOLE SODIUM [Concomitant]
     Dosage: 40 MG, QD
     Route: 065
  6. TORSEMIDE [Concomitant]
     Dosage: 10 MG, QD
     Route: 065
  7. NEBILET [Concomitant]
     Dosage: 5 MG, QD
     Route: 065
  8. INSULIN [Concomitant]
     Route: 065
  9. PROTAPHAN [Concomitant]
     Dosage: 26 IU, QD
     Route: 058
  10. NOVALGIN [Concomitant]
     Dosage: 1 DF, TID
  11. VOLTAREN DISPERS ^NOVARTIS^ [Concomitant]
     Dosage: 1 DF, BID
  12. PERENTEROL [Concomitant]
     Dosage: 2 DF, TID

REACTIONS (32)
  - ABDOMINAL PAIN UPPER [None]
  - ANTITHROMBIN III DECREASED [None]
  - ARTERIOGRAM CORONARY ABNORMAL [None]
  - BIOPSY [None]
  - BLOOD BILIRUBIN INCREASED [None]
  - BLOOD CREATININE INCREASED [None]
  - BLOOD FIBRINOGEN INCREASED [None]
  - BLOOD LACTIC ACID INCREASED [None]
  - CHEST PAIN [None]
  - CHLOROMA [None]
  - CHOLELITHIASIS [None]
  - CHRONIC MYELOID LEUKAEMIA [None]
  - COLITIS [None]
  - COLONOSCOPY [None]
  - COMPUTERISED TOMOGRAM ABNORMAL [None]
  - CORONARY ARTERY DISEASE [None]
  - COUGH [None]
  - DIARRHOEA [None]
  - DISEASE PROGRESSION [None]
  - ECHOGRAPHY ABNORMAL [None]
  - ENTERITIS [None]
  - EYELID OEDEMA [None]
  - OEDEMA [None]
  - PANCREATITIS CHRONIC [None]
  - PERICARDIAL EFFUSION [None]
  - PERITONEAL DISORDER [None]
  - PLEURAL EFFUSION [None]
  - PNEUMONIA [None]
  - PROTHROMBIN TIME PROLONGED [None]
  - PYREXIA [None]
  - ULTRASOUND ABDOMEN ABNORMAL [None]
  - ULTRASOUND SCAN ABNORMAL [None]
